FAERS Safety Report 10522633 (Version 1)
Quarter: 2014Q4

REPORT INFORMATION
  Report Type: Spontaneous
  Country: US (occurrence: US)
  Receive Date: 20141016
  Receipt Date: 20141016
  Transmission Date: 20150528
  Serious: No
  Sender: FDA-Public Use
  Company Number: US-AMGEN INC.-USASP2014078715

PATIENT
  Age: 45 Year
  Sex: Female

DRUGS (4)
  1. REMICADE [Concomitant]
     Active Substance: INFLIXIMAB
     Dosage: FOR 3 YEARS
  2. STELARA [Concomitant]
     Active Substance: USTEKINUMAB
     Dosage: FOR 1 YEAR
  3. HUMIRA [Concomitant]
     Active Substance: ADALIMUMAB
     Dosage: UNK 6 MONTHS
  4. ENBREL [Suspect]
     Active Substance: ETANERCEPT
     Indication: PSORIASIS
     Dosage: UNK UNK, 2 TIMES/WK
     Route: 065

REACTIONS (2)
  - Skin plaque [Not Recovered/Not Resolved]
  - Therapeutic response decreased [Not Recovered/Not Resolved]
